FAERS Safety Report 19556814 (Version 1)
Quarter: 2021Q3

REPORT INFORMATION
  Report Type: Spontaneous
  Country: IT (occurrence: IT)
  Receive Date: 20210714
  Receipt Date: 20210714
  Transmission Date: 20211014
  Serious: Yes (Other)
  Sender: FDA-Public Use
  Company Number: IT-MYLANLABS-2021M1041717

PATIENT
  Age: 56 Year
  Sex: Male
  Weight: 80 kg

DRUGS (1)
  1. ARIPIPRAZOLO MYLAN ITALIA [Suspect]
     Active Substance: ARIPIPRAZOLE
     Indication: ANXIETY
     Dosage: 10 MILLIGRAM, QD
     Route: 048
     Dates: start: 20180120, end: 20200120

REACTIONS (3)
  - Orthostatic intolerance [Unknown]
  - Hypotensive crisis [Unknown]
  - Balance disorder [Unknown]

NARRATIVE: CASE EVENT DATE: 20200120
